FAERS Safety Report 5671279-3 (Version None)
Quarter: 2008Q1

REPORT INFORMATION
  Report Type: 
  Country: None (occurrence: None)
  Receive Date: 20080318
  Receipt Date: 20080310
  Transmission Date: 20080703
  Serious: Yes (Other)
  Sender: FDA-Public Use
  Company Number: JP-BRISTOL-MYERS SQUIBB COMPANY-14076491

PATIENT
  Age: 68 Year
  Sex: Male

DRUGS (16)
  1. ABILIFY [Suspect]
     Indication: SCHIZOPHRENIA
     Route: 048
     Dates: start: 20071106, end: 20080204
  2. SEROQUEL [Suspect]
     Indication: SCHIZOPHRENIA
     Route: 048
     Dates: start: 20080204, end: 20080204
  3. SEROQUEL [Suspect]
     Indication: INSOMNIA
     Route: 048
     Dates: start: 20080204, end: 20080204
  4. LAC-B [Concomitant]
     Dosage: AEROSOL METERED
     Dates: end: 20080204
  5. MAGNESIUM OXIDE [Concomitant]
     Dates: end: 20080204
  6. DORAL [Concomitant]
     Dosage: DOSE FORM=TABLET
     Dates: end: 20080204
  7. GLYSENNID [Concomitant]
     Dates: end: 20080204
  8. ALOSENN [Concomitant]
     Dosage: DOSE FORM=POWDER
     Dates: end: 20080204
  9. BROTIZOLAM [Concomitant]
     Dosage: DOSE FORM=TABLET
     Dates: start: 20070706, end: 20080204
  10. CHLORPROMAZINE HCL [Concomitant]
     Dates: end: 20080203
  11. OXATOWA [Concomitant]
     Dates: start: 20071219, end: 20080117
  12. EMEDASTINE DIFUMARATE [Concomitant]
     Dosage: DOSE FORM=CAPSULE
     Dates: start: 20071219, end: 20080117
  13. ALFACALCIDOL [Concomitant]
     Dosage: DOSE FORM=CAPSULE
     Dates: start: 20071219, end: 20080117
  14. PIROAN [Concomitant]
     Dosage: DOSE FORM=TABLET
     Dates: start: 20071219, end: 20080117
  15. CLOBETASOL PROPIONATE [Concomitant]
     Dosage: DOSE FORM=CREAM
     Dates: start: 20071219, end: 20080204
  16. ITRACONAZOLE [Concomitant]
     Dosage: DOSE FORM=CAPSULE
     Dates: start: 20071219, end: 20080117

REACTIONS (3)
  - CONSTIPATION [None]
  - INSOMNIA [None]
  - WATER INTOXICATION [None]
